FAERS Safety Report 21351895 (Version 1)
Quarter: 2022Q3

REPORT INFORMATION
  Report Type: Spontaneous
  Country: CN (occurrence: CN)
  Receive Date: 20220920
  Receipt Date: 20220920
  Transmission Date: 20221027
  Serious: Yes (Other)
  Sender: FDA-Public Use
  Company Number: CN-BRISTOL-MYERS SQUIBB COMPANY-2022-105986

PATIENT
  Age: 46 Year

DRUGS (2)
  1. OPDIVO [Suspect]
     Active Substance: NIVOLUMAB
     Indication: Non-small cell lung cancer
     Dosage: STRENGTH IS 40 MG AND 100 MG?IV DRIP FOR 30-40 MINUTES
     Route: 041
     Dates: start: 201809, end: 2021
  2. LENVATINIB MESYLATE [Concomitant]
     Active Substance: LENVATINIB MESYLATE
     Indication: Product used for unknown indication
     Route: 065

REACTIONS (5)
  - Non-small cell lung cancer [Unknown]
  - Intentional product use issue [Unknown]
  - Cerebral infarction [Unknown]
  - Hemiplegia [Unknown]
  - Weight decreased [Unknown]

NARRATIVE: CASE EVENT DATE: 20200101
